FAERS Safety Report 8169001-4 (Version None)
Quarter: 2012Q1

REPORT INFORMATION
  Report Type: 
  Country: None (occurrence: None)
  Receive Date: 20120227
  Receipt Date: 20120217
  Transmission Date: 20120608
  Serious: Yes (Disabling)
  Sender: FDA-Public Use
  Company Number: PHHY2012IT014456

PATIENT
  Sex: Female

DRUGS (2)
  1. FUROSEMIDE [Suspect]
  2. METFORMIN HCL [Suspect]

REACTIONS (2)
  - APHASIA [None]
  - ISCHAEMIC STROKE [None]
